FAERS Safety Report 11938957 (Version 1)
Quarter: 2016Q1

REPORT INFORMATION
  Report Type: Spontaneous
  Country: DE (occurrence: DE)
  Receive Date: 20160122
  Receipt Date: 20160122
  Transmission Date: 20160526
  Serious: Yes (Life-Threatening, Hospitalization)
  Sender: FDA-Public Use
  Company Number: DE-HORIZON-BUP-0009-2016

PATIENT
  Age: 10 Year
  Sex: Female

DRUGS (1)
  1. AMMONAPS POWDER [Suspect]
     Active Substance: SODIUM PHENYLBUTYRATE
     Indication: ORNITHINE TRANSCARBAMOYLASE DEFICIENCY

REACTIONS (1)
  - Coma [Not Recovered/Not Resolved]
